FAERS Safety Report 7299284-4 (Version None)
Quarter: 2011Q1

REPORT INFORMATION
  Report Type: 
  Country: None (occurrence: None)
  Receive Date: 20110217
  Receipt Date: 20110208
  Transmission Date: 20110831
  Serious: Yes (Hospitalization)
  Sender: FDA-Public Use
  Company Number: FR-ELI_LILLY_AND_COMPANY-FR201102001917

PATIENT
  Sex: Male

DRUGS (6)
  1. ARANESP [Concomitant]
     Dates: start: 20101126, end: 20101126
  2. GEMZAR [Suspect]
     Indication: PANCREATIC CARCINOMA
     Route: 042
     Dates: start: 20100901, end: 20101208
  3. ATACAND [Concomitant]
     Indication: HYPERTENSION
     Dosage: 4 MG, DAILY (1/D)
     Route: 048
     Dates: end: 20101229
  4. ZOPHREN [Concomitant]
     Dates: start: 20101208
  5. CREON [Concomitant]
     Indication: PANCREATIC CARCINOMA
     Route: 048
     Dates: start: 20100901
  6. VOGALENE [Concomitant]
     Dates: start: 20101208

REACTIONS (4)
  - FALL [None]
  - ENCEPHALOPATHY [None]
  - RENAL FAILURE [None]
  - PULMONARY HYPERTENSION [None]
